FAERS Safety Report 10963538 (Version 1)
Quarter: 2015Q1

REPORT INFORMATION
  Report Type: Spontaneous
  Country: US (occurrence: None)
  Receive Date: 20150226
  Receipt Date: 20150226
  Transmission Date: 20150721
  Serious: Yes (Other)
  Sender: FDA-Public Use
  Company Number: TPA2012A03070

PATIENT
  Age: 58 Year
  Sex: Male
  Weight: 78.47 kg

DRUGS (9)
  1. NOVOLIN R (INSULIN HUMAN) [Concomitant]
  2. SYNTHROID [Concomitant]
     Active Substance: LEVOTHYROXINE SODIUM
  3. NASONEX [Concomitant]
     Active Substance: MOMETASONE FUROATE
  4. GLUCOPHAGE [Concomitant]
     Active Substance: METFORMIN HYDROCHLORIDE
  5. METFORMIN [Concomitant]
     Active Substance: METFORMIN HYDROCHLORIDE
  6. GLIPIZIDE. [Concomitant]
     Active Substance: GLIPIZIDE
  7. EPIPEN [Concomitant]
     Active Substance: EPINEPHRINE
  8. ACTOS [Suspect]
     Active Substance: PIOGLITAZONE HYDROCHLORIDE
     Indication: TYPE 2 DIABETES MELLITUS
     Dates: start: 20050722
  9. AMARYL (GLIMIEPIRIDE) [Concomitant]

REACTIONS (2)
  - Bladder transitional cell carcinoma [None]
  - Cystitis [None]

NARRATIVE: CASE EVENT DATE: 20111005
